FAERS Safety Report 10893269 (Version 2)
Quarter: 2015Q2

REPORT INFORMATION
  Report Type: Spontaneous
  Country: US (occurrence: US)
  Receive Date: 20150306
  Receipt Date: 20150604
  Transmission Date: 20150821
  Serious: No
  Sender: FDA-Public Use
  Company Number: US-ELI_LILLY_AND_COMPANY-US201502009506

PATIENT
  Age: 26 Year
  Sex: Female
  Weight: 113.38 kg

DRUGS (1)
  1. INSULIN HUMAN [Suspect]
     Active Substance: INSULIN HUMAN
     Indication: TYPE 1 DIABETES MELLITUS
     Dosage: 10 U, TID
     Route: 058
     Dates: start: 20140826, end: 201501

REACTIONS (9)
  - Body mass index increased [Recovered/Resolved]
  - Photopsia [Recovered/Resolved]
  - Weight abnormal [Recovered/Resolved]
  - Glycosylated haemoglobin increased [Recovered/Resolved]
  - Amenorrhoea [Recovered/Resolved]
  - Somnambulism [Recovered/Resolved]
  - Feeling cold [Recovered/Resolved]
  - Hypoglycaemia [Recovered/Resolved]
  - Nightmare [Recovered/Resolved]
